FAERS Safety Report 17974957 (Version 1)
Quarter: 2020Q3

REPORT INFORMATION
  Report Type: Spontaneous
  Country: DE (occurrence: DE)
  Receive Date: 20200702
  Receipt Date: 20200702
  Transmission Date: 20201103
  Serious: Yes (Hospitalization)
  Sender: FDA-Public Use
  Company Number: DE-NOVOPROD-736206

PATIENT
  Age: 14 Year
  Sex: Female
  Weight: 54 kg

DRUGS (2)
  1. TRESIBA [Suspect]
     Active Substance: INSULIN DEGLUDEC
     Indication: TYPE 1 DIABETES MELLITUS
     Dosage: 14 IU, QD (DAILY DOSE: 14 IU INTERNATIONAL UNIT(S) EVERY DAYS)
     Route: 058
  2. ACTRAPID [Suspect]
     Active Substance: INSULIN HUMAN
     Indication: TYPE 1 DIABETES MELLITUS
     Dosage: TO PLAN
     Route: 058

REACTIONS (4)
  - Ketoacidosis [Recovering/Resolving]
  - Treatment noncompliance [Recovering/Resolving]
  - Product administration error [Recovering/Resolving]
  - Investigation noncompliance [Recovering/Resolving]

NARRATIVE: CASE EVENT DATE: 20200126
